FAERS Safety Report 14703553 (Version 1)
Quarter: 2018Q2

REPORT INFORMATION
  Report Type: Spontaneous
  Country: GB (occurrence: GB)
  Receive Date: 20180402
  Receipt Date: 20180402
  Transmission Date: 20180711
  Serious: Yes (Other)
  Sender: FDA-Public Use
  Company Number: GB-JNJFOC-20180331635

PATIENT
  Sex: Female

DRUGS (2)
  1. PARACETAMOL 120MG/5ML ORAL SUSPENSION [Suspect]
     Active Substance: ACETAMINOPHEN
     Route: 048
  2. PARACETAMOL 120MG/5ML ORAL SUSPENSION [Suspect]
     Active Substance: ACETAMINOPHEN
     Indication: PRODUCT USED FOR UNKNOWN INDICATION
     Route: 048

REACTIONS (3)
  - Swelling face [Unknown]
  - Blindness [Unknown]
  - Hypersensitivity [Unknown]
